FAERS Safety Report 17273109 (Version 2)
Quarter: 2020Q1

REPORT INFORMATION
  Report Type: Spontaneous
  Country: US (occurrence: US)
  Receive Date: 20200115
  Receipt Date: 20200213
  Transmission Date: 20200409
  Serious: No
  Sender: FDA-Public Use
  Company Number: US-GILEAD-2020-0446601

PATIENT
  Age: 67 Year
  Sex: Male

DRUGS (2)
  1. ARIPIPRAZOLE. [Concomitant]
     Active Substance: ARIPIPRAZOLE
  2. DESCOVY [Suspect]
     Active Substance: EMTRICITABINE\TENOFOVIR ALAFENAMIDE FUMARATE
     Indication: PRODUCT USED FOR UNKNOWN INDICATION
     Route: 065

REACTIONS (3)
  - Wrong product administered [Recovered/Resolved]
  - Product distribution issue [Recovered/Resolved]
  - Product dispensing error [Recovered/Resolved]
